FAERS Safety Report 9153619 (Version 1)
Quarter: 2013Q1

REPORT INFORMATION
  Report Type: Spontaneous
  Country: GB (occurrence: None)
  Receive Date: 20130205
  Receipt Date: 20130205
  Transmission Date: 20140127
  Serious: Yes (Life-Threatening, Hospitalization)
  Sender: FDA-Public Use
  Company Number: AUR-APL-2013-01050

PATIENT
  Age: 73 Year
  Sex: Male

DRUGS (13)
  1. NAPROXEN (NAPROXEN) [Suspect]
     Indication: OSTEOARTHRITIS
     Dosage: 1000 MG (500 MG, 2 IN 1 D), ORAL
     Dates: end: 20130106
  2. ASPIRIN (ACETYLSALICYLIC ACID) [Suspect]
     Indication: PRODUCT USED FOR UNKNOWN INDICATION
     Route: 048
     Dates: start: 19980105, end: 20130106
  3. CO-CODAMOL (PANADEINE CO) [Concomitant]
  4. DICLOFENAC (DICLOFENAC) [Concomitant]
  5. FUROSEMIDE (FUROSEMIDE) [Concomitant]
  6. GLYCERYL TRINITRATE (GLYCERYL TRINITRATE) [Concomitant]
  7. ISOSORBIDE MONONITRATE (ISOSORBIDE MONONITRATE) [Concomitant]
  8. METFORMIN (METFORMIN) [Concomitant]
  9. NICORANDIL (NICORANDIL) [Concomitant]
  10. PANTOPRAZOLE (PANTOPRAZOLE) [Concomitant]
  11. RAMIPRIL (RAMIPRIL) [Concomitant]
  12. SIMVASTATIN (SIMVASTATIN) [Concomitant]
  13. TILDIEM LA (DILTIAZEM HYDROCHLORIDE) [Concomitant]

REACTIONS (5)
  - Haematemesis [None]
  - Gastritis erosive [None]
  - Gastrointestinal haemorrhage [None]
  - Renal failure acute [None]
  - Normochromic normocytic anaemia [None]
